FAERS Safety Report 11809027 (Version 1)
Quarter: 2015Q4

REPORT INFORMATION
  Report Type: Spontaneous
  Country: IT (occurrence: IT)
  Receive Date: 20151207
  Receipt Date: 20151207
  Transmission Date: 20160305
  Serious: Yes (Hospitalization)
  Sender: FDA-Public Use
  Company Number: IT-SA-2015SA200565

PATIENT
  Age: 51 Year
  Sex: Male

DRUGS (4)
  1. BROMAZEPAM [Suspect]
     Active Substance: BROMAZEPAM
     Indication: SUICIDE ATTEMPT
     Route: 048
     Dates: start: 20151109, end: 20151109
  2. STILNOX [Suspect]
     Active Substance: ZOLPIDEM TARTRATE
     Indication: SUICIDE ATTEMPT
     Route: 048
     Dates: start: 20151109, end: 20151109
  3. NOZINAN [Concomitant]
     Active Substance: LEVOMEPROMAZINE
     Route: 065
  4. QUENTIAX [Suspect]
     Active Substance: QUETIAPINE FUMARATE
     Indication: SUICIDE ATTEMPT
     Route: 048
     Dates: start: 20151109, end: 20151109

REACTIONS (3)
  - Drug abuse [Unknown]
  - Sopor [Recovering/Resolving]
  - Suicide attempt [Unknown]

NARRATIVE: CASE EVENT DATE: 20151109
